FAERS Safety Report 12427613 (Version 1)
Quarter: 2016Q2

REPORT INFORMATION
  Report Type: Spontaneous
  Country: US (occurrence: US)
  Receive Date: 20160602
  Receipt Date: 20160602
  Transmission Date: 20160815
  Serious: Yes (Hospitalization)
  Sender: FDA-Public Use
  Company Number: US-ROCHE-1767457

PATIENT
  Sex: Female

DRUGS (1)
  1. RITUXAN [Suspect]
     Active Substance: RITUXIMAB
     Indication: PRODUCT USED FOR UNKNOWN INDICATION
     Route: 065

REACTIONS (6)
  - Optic neuritis [Unknown]
  - Dysphagia [Unknown]
  - Muscular weakness [Unknown]
  - Amnesia [Unknown]
  - Back pain [Unknown]
  - Fatigue [Unknown]

NARRATIVE: CASE EVENT DATE: 20160516
